FAERS Safety Report 16173607 (Version 1)
Quarter: 2019Q2

REPORT INFORMATION
  Report Type: Spontaneous
  Country: US (occurrence: US)
  Receive Date: 20190306
  Receipt Date: 20190306
  Transmission Date: 20190711
  Serious: No
  Sender: FDA-Public Use
  Company Number: None

PATIENT
  Age: 61 Year
  Sex: Male

DRUGS (1)
  1. ZARXIO [Suspect]
     Active Substance: FILGRASTIM-SNDZ
     Indication: CHRONIC MYELOID LEUKAEMIA
     Route: 058
     Dates: start: 20180220, end: 20190306

REACTIONS (2)
  - Product substitution issue [None]
  - Adverse drug reaction [None]

NARRATIVE: CASE EVENT DATE: 20190225
